FAERS Safety Report 8510737-0 (Version None)
Quarter: 2012Q3

REPORT INFORMATION
  Report Type: 
  Country: None (occurrence: None)
  Receive Date: 20120716
  Receipt Date: 20120709
  Transmission Date: 20120928
  Serious: No
  Sender: FDA-Public Use
  Company Number: US-PFIZER INC-2012164364

PATIENT
  Sex: Female
  Weight: 62.132 kg

DRUGS (3)
  1. CALCITONIN [Concomitant]
     Dosage: UNK
  2. TOVIAZ [Suspect]
     Indication: HYPERTONIC BLADDER
     Dosage: 4 MG, 1X/DAY
     Route: 048
     Dates: start: 20120619, end: 20120703
  3. PRILOSEC [Concomitant]
     Indication: GASTRIC DISORDER
     Dosage: UNK, 1X/DAY

REACTIONS (3)
  - TONGUE DISORDER [None]
  - OROPHARYNGEAL PAIN [None]
  - DYSPHAGIA [None]
